FAERS Safety Report 12475377 (Version 5)
Quarter: 2016Q3

REPORT INFORMATION
  Report Type: Report from Study
  Country: US (occurrence: US)
  Receive Date: 20160617
  Receipt Date: 20160902
  Transmission Date: 20161109
  Serious: Yes (Hospitalization, Other)
  Sender: FDA-Public Use
  Company Number: US-BAYER-2016-118483

PATIENT
  Age: 30 Year
  Sex: Female
  Weight: 111.57 kg

DRUGS (6)
  1. WARFARIN [Concomitant]
     Active Substance: WARFARIN
     Dosage: UNK
  2. ADEMPAS [Suspect]
     Active Substance: RIOCIGUAT
     Indication: PULMONARY HYPERTENSION
     Dosage: 1.5 MG, TID
     Route: 048
  3. OPSUMIT [Concomitant]
     Active Substance: MACITENTAN
     Dosage: UNK
  4. ADEMPAS [Suspect]
     Active Substance: RIOCIGUAT
     Indication: PULMONARY HYPERTENSION
     Dosage: 0.5 MG, TID
     Route: 048
  5. ADEMPAS [Suspect]
     Active Substance: RIOCIGUAT
     Indication: PULMONARY HYPERTENSION
     Dosage: 2 MG, TID
     Route: 048
  6. ADEMPAS [Suspect]
     Active Substance: RIOCIGUAT
     Indication: PULMONARY HYPERTENSION
     Dosage: UNK
     Dates: start: 20160714

REACTIONS (13)
  - Bronchitis [None]
  - Cough [Unknown]
  - Haematemesis [Unknown]
  - Respiratory tract infection [Unknown]
  - Epistaxis [Not Recovered/Not Resolved]
  - Syncope [None]
  - Dizziness [None]
  - Dizziness postural [None]
  - Hospitalisation [None]
  - Chest discomfort [Not Recovered/Not Resolved]
  - Atrioventricular block second degree [None]
  - Dyspnoea exertional [None]
  - Hypoxia [None]

NARRATIVE: CASE EVENT DATE: 201605
